FAERS Safety Report 7972484-3 (Version None)
Quarter: 2011Q4

REPORT INFORMATION
  Report Type: 
  Country: None (occurrence: None)
  Receive Date: 20111213
  Receipt Date: 20111207
  Transmission Date: 20120403
  Serious: Yes (Other)
  Sender: FDA-Public Use
  Company Number: US-BRISTOL-MYERS SQUIBB COMPANY-15851868

PATIENT
  Age: 46 Year
  Sex: Female
  Weight: 47 kg

DRUGS (1)
  1. IPILIMUMAB [Suspect]
     Indication: MALIGNANT MELANOMA
     Dosage: C4:26MAY11 CYC:21 DAYS. 10MG/KG IV OVER 90MIN ON DAY 1.
     Route: 042
     Dates: start: 20110323, end: 20110505

REACTIONS (1)
  - ABDOMINAL PAIN [None]
